FAERS Safety Report 20436117 (Version 2)
Quarter: 2022Q1

REPORT INFORMATION
  Report Type: Spontaneous
  Country: US (occurrence: US)
  Receive Date: 20220207
  Receipt Date: 20220307
  Transmission Date: 20220423
  Serious: No
  Sender: FDA-Public Use
  Company Number: US-NOVARTISTESTPH-NVSC2022US025775

PATIENT
  Age: 57 Year
  Sex: Female
  Weight: 72.56 kg

DRUGS (4)
  1. COMBIPATCH [Suspect]
     Active Substance: ESTRADIOL\NORETHINDRONE ACETATE
     Indication: Menopause
     Dosage: UNK, BIW, (ESTRADIOL 0.05 MG AND NORETHINDRONE 0.14 MG)
     Route: 062
     Dates: start: 202109
  2. COMBIPATCH [Suspect]
     Active Substance: ESTRADIOL\NORETHINDRONE ACETATE
     Indication: Hot flush
  3. COMBIPATCH [Suspect]
     Active Substance: ESTRADIOL\NORETHINDRONE ACETATE
     Indication: Hormone replacement therapy
  4. DUPILUMAB [Concomitant]
     Active Substance: DUPILUMAB
     Indication: Eczema
     Dosage: UNK, Q2MO
     Route: 065
     Dates: start: 20211001

REACTIONS (1)
  - Therapeutic product effect incomplete [Not Recovered/Not Resolved]

NARRATIVE: CASE EVENT DATE: 20220101
